FAERS Safety Report 8553709-2 (Version None)
Quarter: 2012Q3

REPORT INFORMATION
  Report Type: 
  Country: None (occurrence: None)
  Receive Date: 20120731
  Receipt Date: 20120726
  Transmission Date: 20120928
  Serious: Yes (Other)
  Sender: FDA-Public Use
  Company Number: US-PFIZER INC-2012181859

PATIENT
  Sex: Female
  Weight: 86.6 kg

DRUGS (1)
  1. DEPO-PROVERA [Suspect]
     Indication: CONTRACEPTION
     Dosage: UNK, EVERY 3 MONTHS
     Route: 030
     Dates: start: 20120611

REACTIONS (5)
  - CHEST PAIN [None]
  - CHEST DISCOMFORT [None]
  - INSOMNIA [None]
  - HEART RATE INCREASED [None]
  - DYSPNOEA [None]
